FAERS Safety Report 8659566 (Version 3)
Quarter: 2014Q4

REPORT INFORMATION
  Report Type: Report from Study
  Country: MX (occurrence: MX)
  Receive Date: 20120711
  Receipt Date: 20141127
  Transmission Date: 20150529
  Serious: Yes (Other)
  Sender: FDA-Public Use
  Company Number: PHHY2012MX058940

PATIENT
  Age: 63 Year
  Sex: Female

DRUGS (3)
  1. ACLASTA [Suspect]
     Active Substance: ZOLEDRONIC ACID
     Indication: OSTEOPENIA
     Dosage: 5 MG/100 ML ONCE YEAR
     Route: 042
     Dates: start: 20090828
  2. ACLASTA [Suspect]
     Active Substance: ZOLEDRONIC ACID
     Indication: BLOOD CALCIUM ABNORMAL
  3. ACLASTA [Suspect]
     Active Substance: ZOLEDRONIC ACID
     Indication: OFF LABEL USE
     Dosage: 5 MG/100 ML ONCE YEAR
     Route: 042

REACTIONS (3)
  - Ovarian cancer [Not Recovered/Not Resolved]
  - Ovarian cancer recurrent [Unknown]
  - Foot fracture [Not Recovered/Not Resolved]

NARRATIVE: CASE EVENT DATE: 2010
